FAERS Safety Report 17087537 (Version 9)
Quarter: 2020Q2

REPORT INFORMATION
  Report Type: Report from Study
  Country: DE (occurrence: DE)
  Receive Date: 20191128
  Receipt Date: 20200611
  Transmission Date: 20200713
  Serious: Yes (Life-Threatening, Hospitalization, Disabling)
  Sender: FDA-Public Use
  Company Number: DE-ROCHE-2478947

PATIENT
  Age: 47 Year
  Sex: Male
  Weight: 77 kg

DRUGS (26)
  1. PARACETAMOL [Concomitant]
     Active Substance: ACETAMINOPHEN
     Indication: PREMEDICATION
     Dosage: SUBSEQUENT DOSES ON: 02/MAR/2012, 03/AUG/2012, 18/JAN/2013, 05/JUL/2013, 14/JAN/2014, 28/JAN/2014, 3
     Route: 065
     Dates: start: 20120217
  2. SELEN [SELENIUM] [Concomitant]
     Indication: NUTRITIONAL SUPPLEMENTATION
     Route: 065
     Dates: start: 201001, end: 20110831
  3. CIPROFLOXACINE [CIPROFLOXACIN] [Concomitant]
     Active Substance: CIPROFLOXACIN
     Route: 042
  4. TOPIRAMAT [Concomitant]
     Active Substance: TOPIRAMATE
     Route: 065
     Dates: start: 20190830
  5. BACLOFEN. [Concomitant]
     Active Substance: BACLOFEN
     Route: 065
     Dates: start: 20190807
  6. VANCOMYCIN [Concomitant]
     Active Substance: VANCOMYCIN
     Route: 065
     Dates: start: 20191116, end: 20191125
  7. SELEN [SELENIUM] [Concomitant]
     Route: 065
     Dates: start: 20150421
  8. PROPANOLOL [PROPRANOLOL] [Concomitant]
     Active Substance: PROPRANOLOL HYDROCHLORIDE
     Route: 065
     Dates: start: 20190807
  9. TOPIRAMAT [Concomitant]
     Active Substance: TOPIRAMATE
     Indication: ATAXIA
     Route: 065
     Dates: start: 20190807
  10. OCRELIZUMAB. [Suspect]
     Active Substance: OCRELIZUMAB
     Dosage: 300 MG INFUSIONS ON DAYS 1 AND 15 FOR THE FIRST DOSE AND AS A SINGLE INFUSION OF 600 MG FOR ALL SUBS
     Route: 042
     Dates: start: 20120302, end: 20120302
  11. METHYLPREDNISOLONE. [Concomitant]
     Active Substance: METHYLPREDNISOLONE
     Route: 065
     Dates: start: 20190819
  12. TOVIAZ [Concomitant]
     Active Substance: FESOTERODINE FUMARATE
     Indication: BLADDER DYSFUNCTION
     Route: 065
     Dates: start: 20190616
  13. PROPANOLOL [PROPRANOLOL] [Concomitant]
     Active Substance: PROPRANOLOL HYDROCHLORIDE
     Indication: ATAXIA
     Route: 065
     Dates: start: 201908
  14. ZOPICLON [Concomitant]
     Active Substance: ZOPICLONE
     Indication: SLEEP DISORDER
     Route: 065
     Dates: start: 201908
  15. PLACEBO [Suspect]
     Active Substance: UNSPECIFIED INGREDIENT
     Indication: RELAPSING-REMITTING MULTIPLE SCLEROSIS
     Route: 058
     Dates: start: 20131220, end: 20140110
  16. OCRELIZUMAB. [Suspect]
     Active Substance: OCRELIZUMAB
     Dosage: OLE-WEEK 24?300 MG INFUSIONS ON DAYS 1 AND 15 FOR THE FIRST DOSE AND AS A SINGLE INFUSION OF 600 MG
     Route: 042
     Dates: start: 20140128, end: 20140128
  17. CERTOPARIN SODIUM [Concomitant]
     Active Substance: CERTOPARIN SODIUM
     Route: 065
     Dates: start: 201908
  18. OCRELIZUMAB. [Suspect]
     Active Substance: OCRELIZUMAB
     Indication: RELAPSING-REMITTING MULTIPLE SCLEROSIS
     Dosage: 300 MG INFUSIONS ON DAYS 1 AND 15 FOR THE FIRST DOSE AND AS A SINGLE INFUSION OF 600 MG FOR ALL SUBS
     Route: 042
     Dates: start: 20120217, end: 20120217
  19. OCRELIZUMAB. [Suspect]
     Active Substance: OCRELIZUMAB
     Dosage: 300 MG INFUSIONS ON DAYS 1 AND 15 FOR THE FIRST DOSE AND AS A SINGLE INFUSION OF 600 MG FOR ALL SUBS
     Route: 042
     Dates: start: 20120803, end: 20120803
  20. OCRELIZUMAB. [Suspect]
     Active Substance: OCRELIZUMAB
     Indication: RELAPSING-REMITTING MULTIPLE SCLEROSIS
     Dosage: OLE-WEEK 0?300 MG INFUSIONS ON DAYS 1 AND 15 FOR THE FIRST DOSE AND AS A SINGLE INFUSION OF 600 MG F
     Route: 042
     Dates: start: 20140114, end: 20140114
  21. DIMETINDENE MALEATE [Concomitant]
     Active Substance: DIMETHINDENE MALEATE
     Indication: PREMEDICATION
     Dosage: SUBSEQUENT DOSES ON: 02/MAR/2012, 03/AUG/2012, 18/JAN/2013, 05/JUL/2013, 14/JAN/2014, 28/JAN/2014, 3
     Route: 065
     Dates: start: 20120217
  22. METHYLPREDNISOLONE. [Concomitant]
     Active Substance: METHYLPREDNISOLONE
     Indication: PREMEDICATION
     Dosage: SUBSEQUENT DOSES ON: 02/MAR/2012, 03/AUG/2012, 18/JAN/2013, 05/JUL/2013, 14/JAN/2014, 28/JAN/2014, 3
     Route: 065
     Dates: start: 20120217, end: 20120217
  23. DESLORATADINE. [Concomitant]
     Active Substance: DESLORATADINE
     Indication: RHINITIS ALLERGIC
     Route: 065
     Dates: start: 20170612
  24. TOVIAZ [Concomitant]
     Active Substance: FESOTERODINE FUMARATE
     Route: 065
     Dates: start: 20130328, end: 20130723
  25. ANGOCIN [ARMORACIA RUSTICANA;TROPAEOLUM MAJUS] [Concomitant]
     Route: 065
     Dates: start: 201908
  26. FAMPYRA [Concomitant]
     Active Substance: DALFAMPRIDINE
     Indication: GAIT DISTURBANCE
     Route: 065
     Dates: start: 20190807

REACTIONS (2)
  - Urinary tract infection [Recovered/Resolved with Sequelae]
  - Urosepsis [Recovered/Resolved]

NARRATIVE: CASE EVENT DATE: 20191112
